FAERS Safety Report 15261226 (Version 4)
Quarter: 2018Q4

REPORT INFORMATION
  Report Type: Report from Study
  Country: CA (occurrence: CA)
  Receive Date: 20180809
  Receipt Date: 20181004
  Transmission Date: 20190204
  Serious: Yes (Hospitalization, Other)
  Sender: FDA-Public Use
  Company Number: CA-BAYER-2018-145734

PATIENT
  Age: 80 Year
  Sex: Male

DRUGS (8)
  1. DILTIAZEM. [Concomitant]
     Active Substance: DILTIAZEM
  2. DIGOXIN. [Concomitant]
     Active Substance: DIGOXIN
     Dosage: UNK
  3. ADEMPAS [Suspect]
     Active Substance: RIOCIGUAT
     Indication: PULMONARY ARTERIAL HYPERTENSION
     Dosage: 0.5 MG, TID
     Route: 048
     Dates: start: 20180815
  4. LASIX [Concomitant]
     Active Substance: FUROSEMIDE
     Dosage: 40 MG, QD
     Dates: start: 20180810
  5. ADEMPAS [Suspect]
     Active Substance: RIOCIGUAT
     Indication: PULMONARY ARTERIAL HYPERTENSION
     Dosage: 1 MG, TID
     Dates: end: 20180817
  6. LASIX [Concomitant]
     Active Substance: FUROSEMIDE
     Dosage: 40 MG, BID
     Dates: start: 20180804
  7. ADEMPAS [Suspect]
     Active Substance: RIOCIGUAT
     Indication: PULMONARY ARTERIAL HYPERTENSION
     Dosage: 0.5 MG, TID
     Route: 048
     Dates: start: 20180709, end: 20180810
  8. ADEMPAS [Suspect]
     Active Substance: RIOCIGUAT
     Indication: PULMONARY ARTERIAL HYPERTENSION
     Dosage: 1 MG, TID
     Route: 048
     Dates: start: 20180810

REACTIONS (18)
  - Fall [Recovered/Resolved]
  - Motor dysfunction [Recovered/Resolved]
  - Mobility decreased [Recovering/Resolving]
  - Nervousness [Unknown]
  - Heart rate increased [Unknown]
  - Dizziness [Recovered/Resolved]
  - Hypotension [Recovering/Resolving]
  - Vomiting [Recovered/Resolved]
  - Fatigue [Not Recovered/Not Resolved]
  - Asthenia [Recovering/Resolving]
  - Loss of consciousness [Recovering/Resolving]
  - Loss of consciousness [Recovered/Resolved]
  - Pallor [None]
  - Dyspnoea [Recovering/Resolving]
  - Blood pressure diastolic decreased [Not Recovered/Not Resolved]
  - Lethargy [Recovered/Resolved]
  - Malaise [Recovering/Resolving]
  - Accident at home [None]

NARRATIVE: CASE EVENT DATE: 20180731
